FAERS Safety Report 14746581 (Version 1)
Quarter: 2018Q2

REPORT INFORMATION
  Report Type: Spontaneous
  Country: PK (occurrence: PK)
  Receive Date: 20180411
  Receipt Date: 20180411
  Transmission Date: 20180711
  Serious: Yes (Hospitalization, Other)
  Sender: FDA-Public Use
  Company Number: PHHY2018PK061392

PATIENT
  Age: 45 Year
  Sex: Female

DRUGS (2)
  1. TACROLIMUS. [Suspect]
     Active Substance: TACROLIMUS
     Indication: IMMUNOSUPPRESSION
     Dosage: Q12H
     Route: 048
     Dates: end: 20180403
  2. TACROLIMUS. [Suspect]
     Active Substance: TACROLIMUS
     Dosage: DOSE INCREASED
     Route: 048

REACTIONS (2)
  - Graft loss [Not Recovered/Not Resolved]
  - Drug level decreased [Unknown]

NARRATIVE: CASE EVENT DATE: 20180304
